FAERS Safety Report 19133072 (Version 2)
Quarter: 2021Q2

REPORT INFORMATION
  Report Type: Spontaneous
  Country: US (occurrence: US)
  Receive Date: 20210413
  Receipt Date: 20210513
  Transmission Date: 20210717
  Serious: Yes (Hospitalization, Other)
  Sender: FDA-Public Use
  Company Number: US-009507513-2104USA002773

PATIENT
  Sex: Female

DRUGS (55)
  1. TEMODAR [Suspect]
     Active Substance: TEMOZOLOMIDE
     Dosage: 50 MILLIGRAM, CYCLICAL, CYCLE 10
     Dates: start: 20210315, end: 20210319
  2. ETOPOSIDE. [Suspect]
     Active Substance: ETOPOSIDE
     Dosage: 0.5 MILLIGRAM, CYCLICAL, CYCLE 3
     Dates: start: 20201019, end: 20201023
  3. IRINOTECAN HYDROCHLORIDE. [Suspect]
     Active Substance: IRINOTECAN HYDROCHLORIDE
     Indication: NEUROBLASTOMA
     Dosage: UNK, CYCLICAL
  4. GRANULOCYTE?MACROPHAGE COLONY STIMULATING FACTOR (UNSPECIFIED) [Suspect]
     Active Substance: GRANULOCYTE-MACROPHAGE COLONY-STIMULATING FACTOR
     Dosage: CYCLE 5
     Dates: start: 201910
  5. DEXAMETHASONE. [Concomitant]
     Active Substance: DEXAMETHASONE
     Dosage: 1MG/ML
  6. UNITUXIN [Suspect]
     Active Substance: DINUTUXIMAB
     Dosage: CYCLE 2
     Route: 041
     Dates: start: 20181217
  7. UNITUXIN [Suspect]
     Active Substance: DINUTUXIMAB
     Dosage: CYCLE 2. AFTER HOME INFUSION IL2
     Route: 041
     Dates: start: 20190702
  8. GRANULOCYTE?MACROPHAGE COLONY STIMULATING FACTOR (UNSPECIFIED) [Suspect]
     Active Substance: GRANULOCYTE-MACROPHAGE COLONY-STIMULATING FACTOR
     Indication: NEUROBLASTOMA
     Dosage: UNK, CYCLICAL
     Dates: start: 20190812
  9. DISULFIRAM. [Suspect]
     Active Substance: DISULFIRAM
     Dosage: 250 MILLIGRAM, QD
     Route: 048
     Dates: start: 20210322
  10. DEXAMETHASONE. [Concomitant]
     Active Substance: DEXAMETHASONE
     Dosage: 1MG/ML
  11. TEMODAR [Suspect]
     Active Substance: TEMOZOLOMIDE
     Dosage: 45 MILLIGRAM, CYCLE 3
     Route: 048
     Dates: start: 20201019, end: 20201023
  12. UNITUXIN [Suspect]
     Active Substance: DINUTUXIMAB
     Dosage: CYCLE 1
     Route: 041
     Dates: start: 20190527
  13. ETOPOSIDE. [Suspect]
     Active Substance: ETOPOSIDE
     Dosage: 0.5 MILLIGRAM, CYCLICAL, CYCLE 4
     Dates: start: 20201109, end: 20201113
  14. ETOPOSIDE. [Suspect]
     Active Substance: ETOPOSIDE
     Dosage: 0.5 MILLIGRAM, CYCLICAL, CYCLE 5
     Dates: start: 20201130, end: 20201204
  15. ETOPOSIDE. [Suspect]
     Active Substance: ETOPOSIDE
     Dosage: 0.5 MILLIGRAM, CYCLICAL, CYCLE 6
     Dates: start: 20201221, end: 20201224
  16. GRANULOCYTE?MACROPHAGE COLONY STIMULATING FACTOR (UNSPECIFIED) [Suspect]
     Active Substance: GRANULOCYTE-MACROPHAGE COLONY-STIMULATING FACTOR
     Dosage: CYCLE 4
     Dates: start: 201909
  17. TEMODAR [Suspect]
     Active Substance: TEMOZOLOMIDE
     Dosage: 45 MILLIGRAM, CYCLE 4
     Route: 048
     Dates: start: 20201109, end: 20201113
  18. TEMODAR [Suspect]
     Active Substance: TEMOZOLOMIDE
     Dosage: 50 MILLIGRAM, CYCLICAL, CYCLE 9
     Dates: start: 20210222, end: 20210226
  19. UNITUXIN [Suspect]
     Active Substance: DINUTUXIMAB
     Dosage: CYCLE 5. AT 100% DOSE
     Route: 041
     Dates: start: 201910
  20. UNITUXIN [Suspect]
     Active Substance: DINUTUXIMAB
     Dosage: CYCLE 5
     Route: 041
     Dates: start: 20201130, end: 20201204
  21. UNITUXIN [Suspect]
     Active Substance: DINUTUXIMAB
     Dosage: CYCLE 8
     Route: 041
     Dates: start: 20210201, end: 20210205
  22. ETOPOSIDE. [Suspect]
     Active Substance: ETOPOSIDE
     Dosage: 0.5 MILLIGRAM, CYCLICAL, CYCLE 8
     Dates: start: 20210201, end: 20210205
  23. ETOPOSIDE. [Suspect]
     Active Substance: ETOPOSIDE
     Dosage: 0.5 MILLIGRAM, CYCLICAL, CYCLE 9
     Dates: start: 20210222, end: 20210226
  24. DISULFIRAM. [Suspect]
     Active Substance: DISULFIRAM
     Indication: PRODUCT USED FOR UNKNOWN INDICATION
     Dosage: 125 MILLIGRAM, QD
     Route: 048
     Dates: start: 20210308
  25. DEXAMETHASONE. [Concomitant]
     Active Substance: DEXAMETHASONE
     Dosage: 1MG/ML
  26. DEXAMETHASONE. [Concomitant]
     Active Substance: DEXAMETHASONE
     Dosage: 1MG/ML
  27. TEMODAR [Suspect]
     Active Substance: TEMOZOLOMIDE
     Dosage: 45 MILLIGRAM, CYCLE 6
     Route: 048
     Dates: start: 20201221, end: 20201224
  28. UNITUXIN [Suspect]
     Active Substance: DINUTUXIMAB
     Dosage: CYCLE 6
     Route: 041
     Dates: start: 20201221, end: 20201224
  29. UNITUXIN [Suspect]
     Active Substance: DINUTUXIMAB
     Dosage: CYCLE 7
     Route: 041
     Dates: start: 20210111, end: 20210116
  30. ETOPOSIDE. [Suspect]
     Active Substance: ETOPOSIDE
     Indication: NEUROBLASTOMA
     Dosage: 0.5 MILLIGRAM, CYCLICAL
     Dates: start: 20200928, end: 20201002
  31. DISULFIRAM. [Suspect]
     Active Substance: DISULFIRAM
     Dosage: 125 MILLIGRAM, QD
     Route: 048
     Dates: start: 20210329
  32. DEXAMETHASONE. [Concomitant]
     Active Substance: DEXAMETHASONE
     Dosage: 1MG/ML
  33. SULFAMETHOXAZOLE (+) TRIMETHOPRIM [Concomitant]
     Active Substance: SULFAMETHOXAZOLE\TRIMETHOPRIM
     Dosage: UNK
  34. UNITUXIN [Suspect]
     Active Substance: DINUTUXIMAB
     Indication: NEUROBLASTOMA
     Dosage: 3.5 MG/ML, CYCLE 1
     Route: 041
     Dates: start: 20181126
  35. UNITUXIN [Suspect]
     Active Substance: DINUTUXIMAB
     Dosage: CYCLE 3. AT 50% DOSE
     Route: 041
     Dates: start: 20190812
  36. UNITUXIN [Suspect]
     Active Substance: DINUTUXIMAB
     Dosage: CYCLE 3
     Route: 041
     Dates: start: 20201019, end: 20201023
  37. ETOPOSIDE. [Suspect]
     Active Substance: ETOPOSIDE
     Dosage: 0.5 MILLIGRAM, CYCLICAL, CYCLE 10
     Dates: start: 20210315, end: 20210319
  38. IRINOTECAN HYDROCHLORIDE. [Suspect]
     Active Substance: IRINOTECAN HYDROCHLORIDE
     Dosage: UNK, CYCLICAL, CYCLE 2
     Dates: start: 20181217
  39. CHOLECALCIFEROL [Concomitant]
     Active Substance: CHOLECALCIFEROL
     Dosage: UNK
  40. FAMOTIDINE. [Concomitant]
     Active Substance: FAMOTIDINE
  41. ONDANSETRON [Concomitant]
     Active Substance: ONDANSETRON
  42. TRAMETINIB [Concomitant]
     Active Substance: TRAMETINIB
  43. TEMODAR [Suspect]
     Active Substance: TEMOZOLOMIDE
     Dosage: 45 MILLIGRAM, CYCLE 5
     Route: 048
     Dates: start: 20201130, end: 20201204
  44. UNITUXIN [Suspect]
     Active Substance: DINUTUXIMAB
     Dosage: CYCLE 4. AT 75% DOSE
     Route: 041
     Dates: start: 201909
  45. UNITUXIN [Suspect]
     Active Substance: DINUTUXIMAB
     Dosage: CYCLE 2
     Route: 041
     Dates: start: 20200928, end: 20201002
  46. UNITUXIN [Suspect]
     Active Substance: DINUTUXIMAB
     Dosage: CYCLE 10
     Route: 041
     Dates: start: 20210315, end: 20210319
  47. ETOPOSIDE. [Suspect]
     Active Substance: ETOPOSIDE
     Dosage: 0.5 MILLIGRAM, CYCLICAL, CYCLE 7
     Dates: start: 20210111, end: 20210116
  48. TEMODAR [Suspect]
     Active Substance: TEMOZOLOMIDE
     Indication: NEUROBLASTOMA
     Dosage: UNK
     Dates: start: 20181126
  49. TEMODAR [Suspect]
     Active Substance: TEMOZOLOMIDE
     Dosage: CYCLE 2
     Dates: start: 20181217
  50. TEMODAR [Suspect]
     Active Substance: TEMOZOLOMIDE
     Dosage: 35 MILLIGRAM, CYCLE 3
     Route: 048
     Dates: start: 20200928, end: 20201002
  51. TEMODAR [Suspect]
     Active Substance: TEMOZOLOMIDE
     Dosage: 45 MILLIGRAM, CYCLE 7
     Route: 048
     Dates: start: 20210111, end: 20210116
  52. TEMODAR [Suspect]
     Active Substance: TEMOZOLOMIDE
     Dosage: 50 MILLIGRAM, CYCLE 8
     Route: 048
     Dates: start: 20210201, end: 20210205
  53. UNITUXIN [Suspect]
     Active Substance: DINUTUXIMAB
     Dosage: CYCLE 1
     Route: 041
     Dates: start: 20200901, end: 20200904
  54. UNITUXIN [Suspect]
     Active Substance: DINUTUXIMAB
     Dosage: CYCLE 4
     Route: 041
     Dates: start: 20201109, end: 20201113
  55. UNITUXIN [Suspect]
     Active Substance: DINUTUXIMAB
     Dosage: CYCLE 9
     Route: 041
     Dates: start: 20210222, end: 20210226

REACTIONS (22)
  - Vitamin D deficiency [Unknown]
  - Protein albumin ratio decreased [Unknown]
  - Dysstasia [Unknown]
  - Hypokinesia [Unknown]
  - Asthenia [Unknown]
  - Osteopenia [Unknown]
  - Serum ferritin increased [Unknown]
  - Malaise [Unknown]
  - Blood thyroid stimulating hormone increased [Unknown]
  - Fatigue [Unknown]
  - Conjunctivitis [Unknown]
  - Urine output decreased [Unknown]
  - Product use issue [Unknown]
  - Headache [Unknown]
  - Thyroxine decreased [Recovered/Resolved]
  - Blood urea nitrogen/creatinine ratio increased [Unknown]
  - Hordeolum [Recovering/Resolving]
  - Malignant neoplasm progression [Unknown]
  - Tachycardia [Unknown]
  - Blood lactate dehydrogenase decreased [Unknown]
  - Tri-iodothyronine decreased [Unknown]
  - Glomerular filtration rate abnormal [Unknown]

NARRATIVE: CASE EVENT DATE: 201911
